FAERS Safety Report 5702889-2 (Version None)
Quarter: 2008Q2

REPORT INFORMATION
  Report Type: 
  Country: None (occurrence: None)
  Receive Date: 20080411
  Receipt Date: 20080403
  Transmission Date: 20081010
  Serious: Yes (Other)
  Sender: FDA-Public Use
  Company Number: US-MERCK-0804USA01369

PATIENT
  Age: 17 Year
  Sex: Female

DRUGS (8)
  1. SINGULAIR [Suspect]
     Route: 048
     Dates: start: 20060901, end: 20080401
  2. ZYRTEC [Concomitant]
     Route: 065
  3. FLONASE [Concomitant]
     Route: 065
  4. FLOVENT [Concomitant]
     Route: 065
  5. PRILOSEC [Concomitant]
     Route: 065
  6. ALBUTEROL [Concomitant]
     Route: 065
  7. TYLENOL (CAPLET) [Suspect]
     Route: 065
  8. PREDNISONE [Concomitant]
     Route: 065

REACTIONS (3)
  - INTENTIONAL OVERDOSE [None]
  - SINUSITIS [None]
  - SUICIDE ATTEMPT [None]
